FAERS Safety Report 7588211-8 (Version None)
Quarter: 2011Q3

REPORT INFORMATION
  Report Type: 
  Country: None (occurrence: None)
  Receive Date: 20110705
  Receipt Date: 20110609
  Transmission Date: 20111222
  Serious: Yes (Other)
  Sender: FDA-Public Use
  Company Number: US-BAYER-201040081NA

PATIENT
  Age: 23 Year
  Sex: Female
  Weight: 90 kg

DRUGS (7)
  1. BENICAR [Concomitant]
     Dosage: UNK
     Route: 048
     Dates: start: 20080101, end: 20100501
  2. LEXAPRO [Concomitant]
     Dosage: 10 MG, UNK
     Route: 048
  3. NEXIUM [Concomitant]
     Route: 048
  4. MAXALT [Concomitant]
     Indication: MIGRAINE
     Dosage: UNK UNK, PRN
     Route: 048
  5. YAZ [Suspect]
     Indication: ORAL CONTRACEPTION
     Dosage: UNK UNK, QD
     Route: 048
     Dates: start: 20080301, end: 20081001
  6. IBUPROFEN [Concomitant]
     Dosage: UNK UNK, PRN
     Route: 048
  7. WELLBUTRIN XL [Concomitant]
     Route: 048

REACTIONS (5)
  - ABDOMINAL PAIN UPPER [None]
  - GALLBLADDER DISORDER [None]
  - CHOLELITHIASIS [None]
  - DYSPEPSIA [None]
  - PROCEDURAL PAIN [None]
